FAERS Safety Report 7898810-1 (Version None)
Quarter: 2011Q4

REPORT INFORMATION
  Report Type: 
  Country: None (occurrence: None)
  Receive Date: 20111107
  Receipt Date: 20111031
  Transmission Date: 20120403
  Serious: Yes (Other)
  Sender: FDA-Public Use
  Company Number: US-US-EMD SERONO, INC.-7084784

PATIENT
  Sex: Female

DRUGS (7)
  1. CELEXA [Concomitant]
     Indication: DEPRESSION
     Route: 048
  2. LEXAPRO [Concomitant]
     Indication: DEPRESSION
     Dates: end: 20110401
  3. LORTAB [Concomitant]
     Indication: PAIN
     Route: 048
  4. XANAX [Concomitant]
  5. REBIF [Suspect]
     Indication: MULTIPLE SCLEROSIS
     Route: 058
     Dates: start: 20100809
  6. UNSPECIFIED BLOOD PRESSURE MEDICATION [Concomitant]
  7. TYLENOL-500 [Concomitant]

REACTIONS (5)
  - BASAL CELL CARCINOMA [None]
  - INJECTION SITE PAIN [None]
  - VISUAL IMPAIRMENT [None]
  - DYSARTHRIA [None]
  - HYPERHIDROSIS [None]
